FAERS Safety Report 8587529-X (Version None)
Quarter: 2012Q3

REPORT INFORMATION
  Report Type: 
  Country: None (occurrence: None)
  Receive Date: 20120810
  Receipt Date: 20120806
  Transmission Date: 20120928
  Serious: Yes (Hospitalization)
  Sender: FDA-Public Use
  Company Number: JP-AMGEN-JPNCT2012050162

PATIENT
  Age: 42 Year
  Sex: Female
  Weight: 53 kg

DRUGS (3)
  1. CYCLOPHOSPHAMIDE [Concomitant]
     Indication: BREAST CANCER
     Dosage: 940 MG, UNK
     Route: 041
     Dates: start: 20111005, end: 20111005
  2. DOCETAXEL [Concomitant]
     Indication: BREAST CANCER
     Dosage: 117 MG, UNK
     Route: 041
     Dates: start: 20111005, end: 20111005
  3. PEGFILGRASTIM [Suspect]
     Indication: CHEMOTHERAPY
     Dosage: 3.6 MG, UNK
     Route: 058
     Dates: start: 20111006, end: 20111006

REACTIONS (2)
  - HYPONATRAEMIA [None]
  - MALAISE [None]
